FAERS Safety Report 15977179 (Version 10)
Quarter: 2019Q3

REPORT INFORMATION
  Report Type: Report from Study
  Country: FR (occurrence: FR)
  Receive Date: 20190218
  Receipt Date: 20190828
  Transmission Date: 20191004
  Serious: Yes (Hospitalization, Other)
  Sender: FDA-Public Use
  Company Number: PHHY2019FR037131

PATIENT
  Age: 68 Year
  Sex: Female
  Weight: 64 kg

DRUGS (2)
  1. ADOPORT [Suspect]
     Active Substance: TACROLIMUS
     Indication: RENAL TRANSPLANT
     Dosage: 2 MG, UNK
     Route: 048
     Dates: start: 20180617
  2. ADOPORT [Suspect]
     Active Substance: TACROLIMUS
     Dosage: 1 MG, UNK
     Route: 048
     Dates: start: 20181113, end: 20181130

REACTIONS (6)
  - Thrombotic microangiopathy [Recovering/Resolving]
  - Ileus [Recovered/Resolved]
  - Gastrointestinal disorder [Recovering/Resolving]
  - Diarrhoea [Recovered/Resolved]
  - Tremor [Recovering/Resolving]
  - Acute kidney injury [Recovering/Resolving]

NARRATIVE: CASE EVENT DATE: 20180726
